FAERS Safety Report 6724280-2 (Version None)
Quarter: 2010Q2

REPORT INFORMATION
  Report Type: 
  Country: None (occurrence: None)
  Receive Date: 20100513
  Receipt Date: 20100511
  Transmission Date: 20101027
  Serious: Yes (Other)
  Sender: FDA-Public Use
  Company Number: US-BRISTOL-MYERS SQUIBB COMPANY-15101116

PATIENT
  Sex: Female

DRUGS (1)
  1. TEQUIN [Suspect]

REACTIONS (2)
  - DIABETES MELLITUS [None]
  - HYPERSENSITIVITY [None]
